FAERS Safety Report 5918571-2 (Version None)
Quarter: 2008Q4

REPORT INFORMATION
  Report Type: 
  Country: None (occurrence: None)
  Receive Date: 20081014
  Receipt Date: 20081014
  Transmission Date: 20090506
  Serious: No
  Sender: FDA-Public Use
  Company Number: None

PATIENT
  Age: 33 Year
  Sex: Female
  Weight: 90.7194 kg

DRUGS (2)
  1. ALPRAZOLAM [Suspect]
     Indication: ANXIETY
     Dosage: 2MG BID PO
     Route: 048
     Dates: start: 20060401, end: 20081001
  2. ALPRAZOLAM [Suspect]
     Indication: INSOMNIA
     Dosage: 2MG BID PO
     Route: 048
     Dates: start: 20060401, end: 20081001

REACTIONS (3)
  - ABDOMINAL PAIN UPPER [None]
  - BACK PAIN [None]
  - MYALGIA [None]
